FAERS Safety Report 12855732 (Version 3)
Quarter: 2016Q4

REPORT INFORMATION
  Report Type: Spontaneous
  Country: GB (occurrence: GB)
  Receive Date: 20161018
  Receipt Date: 20161129
  Transmission Date: 20170207
  Serious: Yes (Hospitalization, Other)
  Sender: FDA-Public Use
  Company Number: GB-AMGEN-GBRSP2016141395

PATIENT
  Age: 83 Year
  Sex: Male

DRUGS (4)
  1. ARANESP [Suspect]
     Active Substance: DARBEPOETIN ALFA
     Indication: ANAEMIA
     Dosage: 200 MUG, QWK
     Route: 058
     Dates: start: 20151023
  2. SIMVASTATIN. [Concomitant]
     Active Substance: SIMVASTATIN
     Dosage: 25 MG, QD
  3. ATENOLOL. [Concomitant]
     Active Substance: ATENOLOL
     Dosage: 25 MG, QD
  4. ASASANTIN [Concomitant]
     Active Substance: ASPIRIN\DIPYRIDAMOLE
     Dosage: 200 MG, UNK

REACTIONS (9)
  - Thrombocytopenia [Not Recovered/Not Resolved]
  - Serum ferritin abnormal [Unknown]
  - Platelet count decreased [Unknown]
  - Transfusion [Unknown]
  - Drug effect decreased [Unknown]
  - Anaemia [Not Recovered/Not Resolved]
  - Anti-erythropoietin antibody positive [Unknown]
  - Aplasia pure red cell [Unknown]
  - Diverticulum [Unknown]

NARRATIVE: CASE EVENT DATE: 20160916
